FAERS Safety Report 4849411-0 (Version None)
Quarter: 2005Q4

REPORT INFORMATION
  Report Type: 
  Country: None (occurrence: None)
  Receive Date: 20051207
  Receipt Date: 20051128
  Transmission Date: 20060501
  Serious: Yes (Other)
  Sender: FDA-Public Use
  Company Number: 2005-10-1207

PATIENT
  Age: 59 Year
  Sex: Male

DRUGS (3)
  1. INTRON A [Suspect]
     Indication: MALIGNANT MELANOMA
     Dosage: 37 MIU 5XW INTRAVENOUS
     Route: 042
     Dates: start: 20050912, end: 20051004
  2. LISINOPRIL [Concomitant]
  3. LEVOTHYROXINE SODIUM [Concomitant]

REACTIONS (12)
  - AGITATION [None]
  - ANXIETY [None]
  - COGNITIVE DISORDER [None]
  - DEPRESSION [None]
  - DYSARTHRIA [None]
  - EMOTIONAL DISTRESS [None]
  - EYE IRRITATION [None]
  - INAPPROPRIATE AFFECT [None]
  - INSOMNIA [None]
  - MYOCLONUS [None]
  - NEUROTOXICITY [None]
  - PSYCHOMOTOR RETARDATION [None]
